FAERS Safety Report 23075837 (Version 1)
Quarter: 2023Q4

REPORT INFORMATION
  Report Type: Spontaneous
  Country: SA (occurrence: SA)
  Receive Date: 20231017
  Receipt Date: 20231017
  Transmission Date: 20240109
  Serious: Yes (Hospitalization)
  Sender: FDA-Public Use
  Company Number: SA-SUN PHARMACEUTICAL INDUSTRIES LTD-2023RR-412977

PATIENT
  Age: 30 Year
  Sex: Female

DRUGS (3)
  1. CARBAMAZEPINE [Suspect]
     Active Substance: CARBAMAZEPINE
     Indication: Trigeminal neuralgia
     Dosage: 200 MILLIGRAM, BID
     Route: 065
  2. CARBAMAZEPINE [Suspect]
     Active Substance: CARBAMAZEPINE
     Dosage: 200 MILLIGRAM, QID
     Route: 065
  3. TOPIRAMATE [Suspect]
     Active Substance: TOPIRAMATE
     Indication: Pain
     Dosage: 50 MILLIGRAM, UNK
     Route: 065

REACTIONS (5)
  - Drug ineffective [Unknown]
  - Therapeutic product effect incomplete [Unknown]
  - Sedation [Unknown]
  - Somnolence [Unknown]
  - Dizziness [Unknown]
